FAERS Safety Report 9315888 (Version 3)
Quarter: 2013Q3

REPORT INFORMATION
  Report Type: Spontaneous
  Country: CO (occurrence: CO)
  Receive Date: 20130530
  Receipt Date: 20130926
  Transmission Date: 20140515
  Serious: Yes (Other)
  Sender: FDA-Public Use
  Company Number: CO-AMGEN-COLSP2013037751

PATIENT
  Age: 45 Year
  Sex: Male

DRUGS (3)
  1. ENBREL [Suspect]
     Indication: PSORIASIS
     Dosage: 50 MG, QWK
     Route: 058
     Dates: start: 2008, end: 201306
  2. TRIMEBUTINE [Concomitant]
     Indication: ABDOMINAL DISCOMFORT
     Dosage: UNK, 3X/DAY
     Route: 048
     Dates: end: 20130508
  3. ENALAPRIL [Concomitant]
     Indication: HYPERTENSION
     Dosage: 20 MG, QD
     Route: 048
     Dates: start: 2010

REACTIONS (6)
  - Cardiomegaly [Not Recovered/Not Resolved]
  - Kidney enlargement [Not Recovered/Not Resolved]
  - Hypertension [Not Recovered/Not Resolved]
  - Suspected counterfeit product [Unknown]
  - Immune system disorder [Not Recovered/Not Resolved]
  - Drug ineffective [Not Recovered/Not Resolved]
